FAERS Safety Report 25177491 (Version 1)
Quarter: 2025Q2

REPORT INFORMATION
  Report Type: Spontaneous
  Country: US (occurrence: US)
  Receive Date: 20250409
  Receipt Date: 20250409
  Transmission Date: 20250717
  Serious: No
  Sender: BIOCON
  Company Number: US-BIOCON-BCN-2025-000096

PATIENT
  Age: 23 Year

DRUGS (1)
  1. TORPENZ [Suspect]
     Active Substance: EVEROLIMUS
     Indication: Tuberous sclerosis complex
     Dosage: TAKE 1 TABLET (10 MG) BY MOUTH ONCE DAILY. SWALLOW WHOLE WITH A GLASS OF WATER. DO NOT TAKE IF BROKE
     Route: 048
     Dates: start: 20250401

REACTIONS (2)
  - Insomnia [Unknown]
  - Product substitution issue [Unknown]

NARRATIVE: CASE EVENT DATE: 20250401
